FAERS Safety Report 5927179-4 (Version None)
Quarter: 2008Q4

REPORT INFORMATION
  Report Type: 
  Country: None (occurrence: None)
  Receive Date: 20081022
  Receipt Date: 20081013
  Transmission Date: 20090506
  Serious: Yes (Other)
  Sender: FDA-Public Use
  Company Number: US-PFIZER INC-2008043739

PATIENT
  Sex: Female
  Weight: 86.2 kg

DRUGS (1)
  1. BEXTRA [Suspect]
     Indication: BACK INJURY

REACTIONS (3)
  - BACK DISORDER [None]
  - SCAR [None]
  - SKIN DISORDER [None]
